FAERS Safety Report 10215392 (Version 2)
Quarter: 2014Q2

REPORT INFORMATION
  Report Type: Spontaneous
  Country: HR (occurrence: HR)
  Receive Date: 20140604
  Receipt Date: 20140604
  Transmission Date: 20141212
  Serious: Yes (Other)
  Sender: FDA-Public Use
  Company Number: HR-ROCHE-1400389

PATIENT
  Age: 67 Year
  Sex: Female
  Weight: 85 kg

DRUGS (6)
  1. XELODA [Suspect]
     Indication: BREAST CANCER METASTATIC
     Route: 048
     Dates: start: 20140502, end: 20140508
  2. XELODA [Suspect]
     Route: 048
     Dates: start: 20140522, end: 20140522
  3. XELODA [Suspect]
     Route: 048
  4. CONCOR [Concomitant]
     Route: 065
  5. SILYMARIN [Concomitant]
     Route: 065
  6. ROYAL JELLY [Concomitant]
     Route: 065

REACTIONS (1)
  - Urticaria [Recovering/Resolving]
